FAERS Safety Report 7809151-2 (Version None)
Quarter: 2011Q4

REPORT INFORMATION
  Report Type: 
  Country: None (occurrence: None)
  Receive Date: 20111012
  Receipt Date: 20111004
  Transmission Date: 20120403
  Serious: Yes (Life-Threatening, Hospitalization)
  Sender: FDA-Public Use
  Company Number: GB-GENZYME-CLOF-1001828

PATIENT
  Sex: Female

DRUGS (5)
  1. EVOLTRA [Suspect]
     Indication: ACUTE LEUKAEMIA
     Dosage: CYCLE 1
     Route: 065
  2. EVOLTRA [Suspect]
     Dosage: CYCLE 2
     Route: 065
  3. DAUNORUBICIN HCL [Suspect]
     Indication: ACUTE LEUKAEMIA
     Dosage: CYCLE 1
     Route: 065
  4. DAUNORUBICIN HCL [Suspect]
     Dosage: CYCLE 2
     Route: 065
  5. MYLOTARG [Suspect]
     Indication: ACUTE LEUKAEMIA
     Dosage: CYCLE 1
     Route: 065

REACTIONS (1)
  - CARDIAC ARREST [None]
